FAERS Safety Report 5759955-5 (Version None)
Quarter: 2008Q2

REPORT INFORMATION
  Report Type: 
  Country: None (occurrence: None)
  Receive Date: 20080605
  Receipt Date: 20080527
  Transmission Date: 20081010
  Serious: Yes (Hospitalization)
  Sender: FDA-Public Use
  Company Number: FR-ROCHE-566915

PATIENT
  Sex: Female

DRUGS (3)
  1. ROCEPHIN [Suspect]
     Indication: RESPIRATORY TRACT INFECTION BACTERIAL
     Route: 048
     Dates: start: 20080114, end: 20080119
  2. PREDNISONE [Concomitant]
     Indication: RESPIRATORY TRACT INFECTION BACTERIAL
     Route: 048
     Dates: start: 20080118, end: 20080119
  3. RULID [Concomitant]
     Indication: RESPIRATORY TRACT INFECTION BACTERIAL
     Dosage: DOSAGE: 1 DOSE.
     Route: 048
     Dates: start: 20080118, end: 20080119

REACTIONS (1)
  - HENOCH-SCHONLEIN PURPURA [None]
